FAERS Safety Report 8483304-5 (Version None)
Quarter: 2012Q3

REPORT INFORMATION
  Report Type: 
  Country: None (occurrence: None)
  Receive Date: 20120702
  Receipt Date: 20120620
  Transmission Date: 20120928
  Serious: Yes (Hospitalization)
  Sender: FDA-Public Use
  Company Number: US-CELGENEUS-163-20785-12052922

PATIENT
  Sex: Female
  Weight: 61.744 kg

DRUGS (6)
  1. KLOR-CON [Concomitant]
     Route: 065
  2. SURMONTIL [Concomitant]
     Route: 065
  3. THALOMID [Suspect]
     Indication: MULTIPLE MYELOMA
     Dosage: 50 MILLIGRAM
     Route: 048
     Dates: start: 20120401, end: 20120501
  4. EFFEXOR [Concomitant]
     Route: 065
  5. FOLIC ACID [Concomitant]
     Route: 065
  6. XANAX [Concomitant]
     Route: 065

REACTIONS (2)
  - MOUTH ULCERATION [None]
  - DEHYDRATION [None]
